FAERS Safety Report 21509977 (Version 1)
Quarter: 2022Q4

REPORT INFORMATION
  Report Type: Spontaneous
  Country: US (occurrence: US)
  Receive Date: 20221026
  Receipt Date: 20221026
  Transmission Date: 20230113
  Serious: Yes (Hospitalization)
  Sender: FDA-Public Use
  Company Number: US-BEXIMCO-2022BEX00061

PATIENT
  Age: 78 Year
  Sex: Male

DRUGS (5)
  1. SOTALOL HYDROCHLORIDE [Suspect]
     Active Substance: SOTALOL HYDROCHLORIDE
     Indication: Heart rate increased
     Dosage: 80 MG, 2X/DAY
     Route: 048
     Dates: start: 20221005
  2. SOTALOL HYDROCHLORIDE [Suspect]
     Active Substance: SOTALOL HYDROCHLORIDE
     Indication: Implantable defibrillator insertion
  3. UNSPECIFIED INGREDIENT [Concomitant]
     Active Substance: UNSPECIFIED INGREDIENT
  4. UNSPECIFIED FAST ACTING INSULIN [Concomitant]
     Dosage: UNK
     Dates: end: 202210
  5. UNSPECIFIED FAST ACTING INSULIN [Concomitant]
     Dosage: 50% MORE
     Dates: start: 202210

REACTIONS (2)
  - Hospitalisation [Unknown]
  - Blood glucose increased [Not Recovered/Not Resolved]

NARRATIVE: CASE EVENT DATE: 20221001
